FAERS Safety Report 17219204 (Version 1)
Quarter: 2019Q4

REPORT INFORMATION
  Report Type: Spontaneous
  Country: US (occurrence: US)
  Receive Date: 20191207
  Receipt Date: 20191207
  Transmission Date: 20200122
  Serious: No
  Sender: FDA-Public Use
  Company Number: None

PATIENT
  Age: 78 Year
  Sex: Female

DRUGS (1)
  1. XELJANZ [Suspect]
     Active Substance: TOFACITINIB CITRATE
     Indication: RHEUMATOID ARTHRITIS
     Route: 048
     Dates: start: 20180106, end: 20191122

REACTIONS (5)
  - Dyspnoea [None]
  - Insomnia [None]
  - Chest pain [None]
  - Feeling abnormal [None]
  - Lung disorder [None]

NARRATIVE: CASE EVENT DATE: 20191008
